FAERS Safety Report 26130913 (Version 1)
Quarter: 2025Q4

REPORT INFORMATION
  Report Type: Spontaneous
  Country: US (occurrence: US)
  Receive Date: 20251208
  Receipt Date: 20251208
  Transmission Date: 20260117
  Serious: No
  Sender: CSL BEHRING
  Company Number: US-CSL-14086

PATIENT
  Age: 20 Year
  Sex: Female

DRUGS (2)
  1. PRIVIGEN [Suspect]
     Active Substance: HUMAN IMMUNOGLOBULIN G
     Indication: Autonomic nervous system imbalance
     Dosage: 70 G, QMT
     Route: 042
     Dates: start: 202405
  2. PRIVIGEN [Suspect]
     Active Substance: HUMAN IMMUNOGLOBULIN G
     Indication: Stiff person syndrome

REACTIONS (2)
  - Hypersensitivity [Recovered/Resolved]
  - Off label use [Recovered/Resolved]

NARRATIVE: CASE EVENT DATE: 20240501
